FAERS Safety Report 7728858-9 (Version None)
Quarter: 2011Q3

REPORT INFORMATION
  Report Type: 
  Country: None (occurrence: None)
  Receive Date: 20110906
  Receipt Date: 20110824
  Transmission Date: 20111222
  Serious: Yes (Other)
  Sender: FDA-Public Use
  Company Number: JP-AMGEN-JPNCT2011044565

PATIENT
  Age: 55 Year
  Sex: Male
  Weight: 48 kg

DRUGS (12)
  1. MUCOSOLVAN [Concomitant]
     Dosage: UNK
     Route: 048
  2. AMARYL [Concomitant]
     Dosage: UNK
     Route: 048
  3. LAFUTIDINE [Concomitant]
     Dosage: UNK
     Route: 048
  4. ENBREL [Suspect]
     Indication: RHEUMATOID ARTHRITIS
     Dosage: 25 MG, 2X/WEEK
     Route: 058
     Dates: start: 20050613
  5. METHYCOBAL [Concomitant]
     Dosage: UNK
     Route: 048
  6. ENBREL [Suspect]
     Dosage: 25 MG, WEEKLY
     Route: 058
     Dates: start: 20051014
  7. RIMATIL [Concomitant]
     Dosage: 200 MG, 1X/DAY
     Route: 048
     Dates: start: 20050423
  8. ASPIRIN [Concomitant]
     Dosage: UNK
     Route: 048
  9. RINDERON                           /00008501/ [Concomitant]
     Indication: RHEUMATOID ARTHRITIS
     Dosage: 1.5 MG, 1X/DAY
     Route: 048
     Dates: start: 19980501, end: 20050423
  10. RIMATIL [Concomitant]
     Indication: RHEUMATOID ARTHRITIS
     Dosage: 300 MG, 1X/DAY
     Route: 048
     Dates: start: 19980401, end: 20050423
  11. RINDERON                           /00008501/ [Concomitant]
     Dosage: 1 MG, 1X/DAY
     Route: 048
     Dates: start: 20050423
  12. AMOBAN [Concomitant]
     Dosage: UNK
     Route: 048

REACTIONS (1)
  - PNEUMOCYSTIS JIROVECI PNEUMONIA [None]
